FAERS Safety Report 6061254-1 (Version None)
Quarter: 2009Q1

REPORT INFORMATION
  Report Type: 
  Country: None (occurrence: None)
  Receive Date: 20090202
  Receipt Date: 20090121
  Transmission Date: 20090719
  Serious: Yes (Hospitalization)
  Sender: FDA-Public Use
  Company Number: JP-ASTRAZENECA-2008AP08835

PATIENT
  Age: 8475 Day
  Sex: Female
  Weight: 55 kg

DRUGS (11)
  1. SEROQUEL [Suspect]
     Dosage: DOSE AT OVERDOSE UNKNOWN
     Route: 048
     Dates: start: 20080412, end: 20080412
  2. LUVOX [Suspect]
     Route: 048
     Dates: start: 20080412, end: 20080412
  3. LENDORMIN [Suspect]
     Route: 048
     Dates: start: 20080412, end: 20080412
  4. EVAMYL [Suspect]
     Route: 048
     Dates: start: 20080412, end: 20080412
  5. SILECE [Suspect]
     Route: 048
     Dates: start: 20080412, end: 20080412
  6. HALCION [Suspect]
     Route: 048
     Dates: start: 20080412, end: 20080412
  7. RIVOTRIL [Suspect]
     Route: 048
     Dates: start: 20080412, end: 20080412
  8. LIMAS [Suspect]
     Route: 048
     Dates: start: 20080412, end: 20080412
  9. RESLIN [Suspect]
     Route: 048
     Dates: start: 20080412, end: 20080412
  10. CARTEOLOL HYDROCHLORIDE [Concomitant]
     Route: 048
     Dates: start: 20080412, end: 20080412
  11. LOXONIN [Concomitant]
     Route: 048
     Dates: start: 20080412, end: 20080412

REACTIONS (2)
  - OVERDOSE [None]
  - THERAPEUTIC AGENT TOXICITY [None]
